FAERS Safety Report 5862460-9 (Version None)
Quarter: 2008Q3

REPORT INFORMATION
  Report Type: 
  Country: None (occurrence: None)
  Receive Date: 20080827
  Receipt Date: 20080827
  Transmission Date: 20090109
  Serious: Yes (Hospitalization)
  Sender: FDA-Public Use
  Company Number: None

PATIENT
  Age: 53 Year
  Sex: Male
  Weight: 105.45 kg

DRUGS (2)
  1. ISOSORBIDE DINITRATE [Suspect]
     Dosage: 10 MG TID PO
     Route: 048
     Dates: start: 20080614, end: 20080624
  2. LISINOPRIL [Suspect]
     Dosage: 40 MG EVERY DAY PO
     Route: 048
     Dates: start: 20070830, end: 20080624

REACTIONS (2)
  - DIZZINESS [None]
  - HYPOTENSION [None]
